FAERS Safety Report 4932925-2 (Version None)
Quarter: 2006Q1

REPORT INFORMATION
  Report Type: 
  Country: None (occurrence: None)
  Receive Date: 20060301
  Receipt Date: 20060301
  Transmission Date: 20060701
  Serious: Yes (Hospitalization)
  Sender: FDA-Public Use
  Company Number: None

PATIENT
  Sex: Female
  Weight: 2.7216 kg

DRUGS (2)
  1. PAROXETINE HCL [Suspect]
     Indication: MAJOR DEPRESSION
     Dosage: 1 TAB ONCE DAILY PO
     Route: 048
     Dates: start: 20050518, end: 20060201
  2. PAROXETINE HCL [Suspect]
     Indication: SUICIDAL IDEATION
     Dosage: 1 TAB ONCE DAILY PO
     Route: 048
     Dates: start: 20050518, end: 20060201

REACTIONS (6)
  - APGAR SCORE LOW [None]
  - CONGENITAL PULMONARY HYPERTENSION [None]
  - DRUG EXPOSURE DURING PREGNANCY [None]
  - NEONATAL HYPOXIA [None]
  - OXYGEN SATURATION DECREASED [None]
  - RESPIRATORY DISORDER NEONATAL [None]
